FAERS Safety Report 7574804-0 (Version None)
Quarter: 2011Q2

REPORT INFORMATION
  Report Type: 
  Country: None (occurrence: None)
  Receive Date: 20110627
  Receipt Date: 20110509
  Transmission Date: 20111010
  Serious: No
  Sender: FDA-Public Use
  Company Number: US-BAYER-2011-041166

PATIENT
  Sex: Female

DRUGS (1)
  1. FINACEA [Suspect]

REACTIONS (4)
  - BURNING SENSATION [None]
  - DISCOMFORT [None]
  - PRURITUS [None]
  - RASH [None]
